FAERS Safety Report 24956871 (Version 1)
Quarter: 2025Q1

REPORT INFORMATION
  Report Type: Spontaneous
  Country: US (occurrence: US)
  Receive Date: 20250211
  Receipt Date: 20250211
  Transmission Date: 20250408
  Serious: No
  Sender: KYOWA
  Company Number: US-KYOWAKIRIN-2025KK002168

PATIENT

DRUGS (2)
  1. CRYSVITA [Suspect]
     Active Substance: BUROSUMAB-TWZA
     Indication: Hereditary hypophosphataemic rickets
     Dosage: 51 MG, 1X/4 WEEKS
     Route: 058
     Dates: start: 202309
  2. SODIUM PHOSPHATE [Suspect]
     Active Substance: SODIUM PHOSPHATE
     Indication: Blood phosphorus decreased
     Route: 065

REACTIONS (3)
  - Blood phosphorus decreased [Unknown]
  - Heart rate increased [Unknown]
  - Contraindicated product administered [Unknown]
